FAERS Safety Report 6020184-1 (Version None)
Quarter: 2008Q4

REPORT INFORMATION
  Report Type: 
  Country: None (occurrence: None)
  Receive Date: 20081226
  Receipt Date: 20081216
  Transmission Date: 20090506
  Serious: Yes (Hospitalization)
  Sender: FDA-Public Use
  Company Number: US-ROCHE-603726

PATIENT
  Age: 28 Year
  Sex: Female

DRUGS (2)
  1. XENICAL [Suspect]
     Indication: DRUG USE FOR UNKNOWN INDICATION
     Route: 065
  2. IRON [Concomitant]

REACTIONS (3)
  - DIABETES INSIPIDUS [None]
  - ILL-DEFINED DISORDER [None]
  - STEATORRHOEA [None]
